FAERS Safety Report 5222477-4 (Version None)
Quarter: 2007Q1

REPORT INFORMATION
  Report Type: 
  Country: None (occurrence: None)
  Receive Date: 20070129
  Receipt Date: 20060314
  Transmission Date: 20070707
  Serious: No
  Sender: FDA-Public Use
  Company Number: US-BRISTOL-MYERS SQUIBB COMPANY-13315361

PATIENT
  Age: 58 Year
  Sex: Female

DRUGS (2)
  1. CARDIOLITE [Suspect]
     Indication: CARDIAC STRESS TEST
     Dates: start: 20060303
  2. DIOVAN [Concomitant]
     Indication: HYPERTENSION

REACTIONS (3)
  - PRURITUS [None]
  - SWELLING [None]
  - URTICARIA [None]
